FAERS Safety Report 7743775-6 (Version None)
Quarter: 2011Q3

REPORT INFORMATION
  Report Type: 
  Country: None (occurrence: None)
  Receive Date: 20110912
  Receipt Date: 20110902
  Transmission Date: 20111222
  Serious: Yes (Hospitalization)
  Sender: FDA-Public Use
  Company Number: US-GLAXOSMITHKLINE-A0782849A

PATIENT
  Age: 64 Year
  Sex: Female
  Weight: 132.3 kg

DRUGS (7)
  1. CARDIZEM [Concomitant]
  2. LIPITOR [Concomitant]
  3. VYTORIN [Concomitant]
  4. AVANDIA [Suspect]
     Indication: DIABETES MELLITUS
     Dosage: 8MG PER DAY
     Route: 048
     Dates: start: 20010801, end: 20060501
  5. GLYBURIDE [Concomitant]
  6. GLYBURIDE [Concomitant]
  7. PRINZIDE [Concomitant]

REACTIONS (4)
  - ACUTE PULMONARY OEDEMA [None]
  - ACUTE RESPIRATORY FAILURE [None]
  - MYOCARDIAL INFARCTION [None]
  - CARDIAC FAILURE CONGESTIVE [None]
